FAERS Safety Report 6584077-3 (Version None)
Quarter: 2010Q1

REPORT INFORMATION
  Report Type: 
  Country: None (occurrence: None)
  Receive Date: 20100216
  Receipt Date: 20091210
  Transmission Date: 20100710
  Serious: No
  Sender: FDA-Public Use
  Company Number: US-ABBOTT-09P-163-0613572-00

PATIENT
  Sex: Male
  Weight: 127.12 kg

DRUGS (5)
  1. SIMCOR [Suspect]
     Indication: HYPERLIPIDAEMIA
     Dates: start: 20091201, end: 20091204
  2. ADVODART [Concomitant]
     Indication: DRUG USE FOR UNKNOWN INDICATION
  3. HRT [Concomitant]
     Indication: DRUG USE FOR UNKNOWN INDICATION
  4. TEROZSIN [Concomitant]
     Indication: DRUG USE FOR UNKNOWN INDICATION
  5. OVER THE COUNTER VITAMIN SUPPLEMENTS [Concomitant]
     Indication: DRUG USE FOR UNKNOWN INDICATION

REACTIONS (3)
  - FLUSHING [None]
  - PRURITUS [None]
  - URTICARIA [None]
